FAERS Safety Report 12973161 (Version 1)
Quarter: 2016Q4

REPORT INFORMATION
  Report Type: Spontaneous
  Country: US (occurrence: US)
  Receive Date: 20161124
  Receipt Date: 20161124
  Transmission Date: 20170207
  Serious: Yes (Other)
  Sender: FDA-Public Use
  Company Number: US-TEVA-714945ACC

PATIENT
  Sex: Female

DRUGS (1)
  1. TAKE ACTION [Suspect]
     Active Substance: LEVONORGESTREL
     Indication: POST COITAL CONTRACEPTION
     Dates: start: 20161031, end: 20161031

REACTIONS (3)
  - Pregnancy after post coital contraception [Unknown]
  - Exposure during pregnancy [Unknown]
  - Menstruation delayed [Not Recovered/Not Resolved]
